FAERS Safety Report 17319907 (Version 1)
Quarter: 2020Q1

REPORT INFORMATION
  Report Type: Spontaneous
  Country: US (occurrence: US)
  Receive Date: 20200126
  Receipt Date: 20200126
  Transmission Date: 20200409
  Serious: Yes (Hospitalization)
  Sender: FDA-Public Use
  Company Number: NVSC2020US016127

PATIENT
  Age: 4 Year
  Sex: Male
  Weight: 16 kg

DRUGS (3)
  1. BIVALIRUDIN. [Suspect]
     Active Substance: BIVALIRUDIN
     Indication: CATHETERISATION CARDIAC
     Dosage: 0.5 MG/KG/H/1
     Route: 065
  2. BIVALIRUDIN. [Suspect]
     Active Substance: BIVALIRUDIN
     Dosage: 2 MG/KG/H/1
     Route: 065
  3. DOPAMINE [Concomitant]
     Active Substance: DOPAMINE HYDROCHLORIDE
     Indication: HAEMODYNAMIC INSTABILITY
     Dosage: UNK
     Route: 065

REACTIONS (1)
  - Haematoma [Unknown]
